FAERS Safety Report 21064844 (Version 1)
Quarter: 2022Q3

REPORT INFORMATION
  Report Type: Spontaneous
  Country: ES (occurrence: ES)
  Receive Date: 20220711
  Receipt Date: 20220711
  Transmission Date: 20221027
  Serious: Yes (Hospitalization)
  Sender: FDA-Public Use
  Company Number: None

PATIENT
  Age: 86 Year
  Sex: Female
  Weight: 54 kg

DRUGS (3)
  1. PAXLOVID [Suspect]
     Active Substance: NIRMATRELVIR\RITONAVIR
     Indication: COVID-19 treatment
     Dosage: 3 DF, 2X/DAY (300MG NIRMATRELVIR + 100 MG RITONAVIR 2XDAY)
     Route: 048
     Dates: start: 20220620
  2. ENOXAPARIN SODIUM [Concomitant]
     Active Substance: ENOXAPARIN SODIUM
     Indication: Congestive cardiomyopathy
     Dosage: UNK
     Dates: start: 202206
  3. HYDROCHLOROTHIAZIDE\LOSARTAN POTASSIUM [Concomitant]
     Active Substance: HYDROCHLOROTHIAZIDE\LOSARTAN POTASSIUM
     Indication: Congestive cardiomyopathy
     Dosage: 1 DF, DAILY
     Route: 048
     Dates: end: 20220621

REACTIONS (4)
  - Melaena [Recovered/Resolved]
  - Hypokalaemia [Recovered/Resolved]
  - Hyponatraemia [Recovered/Resolved]
  - Acute kidney injury [Recovered/Resolved]

NARRATIVE: CASE EVENT DATE: 20220621
